FAERS Safety Report 6940986-4 (Version None)
Quarter: 2010Q3

REPORT INFORMATION
  Report Type: 
  Country: None (occurrence: None)
  Receive Date: 20100825
  Receipt Date: 20100817
  Transmission Date: 20110219
  Serious: Yes (Other)
  Sender: FDA-Public Use
  Company Number: A0877343A

PATIENT
  Age: 63 Year
  Sex: Male

DRUGS (1)
  1. PROMACTA [Suspect]
     Route: 048
     Dates: start: 20090201, end: 20100201

REACTIONS (4)
  - CHRONIC MYELOMONOCYTIC LEUKAEMIA [None]
  - DRUG INEFFECTIVE [None]
  - LYMPHADENOPATHY [None]
  - MONOCYTE COUNT INCREASED [None]
